FAERS Safety Report 9963204 (Version 1)
Quarter: 2014Q1

REPORT INFORMATION
  Report Type: Report from Study
  Country: US (occurrence: US)
  Receive Date: 20140305
  Receipt Date: 20140305
  Transmission Date: 20141002
  Serious: No
  Sender: FDA-Public Use
  Company Number: US-ABBVIE-13P-163-1112736-00

PATIENT
  Age: 57 Year
  Sex: Female

DRUGS (4)
  1. HUMIRA [Suspect]
     Indication: PSORIASIS
     Dates: start: 20130122
  2. LOSARTAN [Concomitant]
     Indication: HYPERTENSION
     Dosage: 25 MG ONCE DAILY
  3. CLARITIN [Concomitant]
     Indication: HYPERSENSITIVITY
  4. LORAZEPAM [Concomitant]
     Indication: PRODUCT USED FOR UNKNOWN INDICATION

REACTIONS (2)
  - Injection site urticaria [Recovered/Resolved]
  - Injection site urticaria [Recovered/Resolved]
